FAERS Safety Report 15811977 (Version 2)
Quarter: 2019Q1

REPORT INFORMATION
  Report Type: Spontaneous
  Country: US (occurrence: US)
  Receive Date: 20190111
  Receipt Date: 20190118
  Transmission Date: 20190417
  Serious: Yes (Hospitalization)
  Sender: FDA-Public Use
  Company Number: US-VERTEX PHARMACEUTICALS-2019-000188

PATIENT
  Sex: Male

DRUGS (14)
  1. ZYVOX [Concomitant]
     Active Substance: LINEZOLID
  2. TOBI [Concomitant]
     Active Substance: TOBRAMYCIN
     Route: 055
  3. NOVOLOG [Concomitant]
     Active Substance: INSULIN ASPART
  4. SULFAMETHIZOLE [Concomitant]
     Active Substance: SULFAMETHIZOLE
  5. CIPROFLOXACIN. [Concomitant]
     Active Substance: CIPROFLOXACIN
  6. MIRTAZAPINE. [Concomitant]
     Active Substance: MIRTAZAPINE
  7. ALBUTEROL                          /00139501/ [Concomitant]
     Active Substance: ALBUTEROL
  8. AZITHROMYCIN ANHYDROUS. [Concomitant]
     Active Substance: AZITHROMYCIN ANHYDROUS
  9. TOBRAMYCIN. [Concomitant]
     Active Substance: TOBRAMYCIN
  10. PULMOZYME [Concomitant]
     Active Substance: DORNASE ALFA
  11. SYMDEKO [Suspect]
     Active Substance: IVACAFTOR\TEZACAFTOR
     Indication: CYSTIC FIBROSIS
     Dosage: 100 MG TEZACAFTOR/150 MG IVACAFTOR AM; 150 MG IVACAFTOR PM
     Route: 048
     Dates: start: 20180823
  12. ALENDRONAT [Concomitant]
     Active Substance: ALENDRONATE SODIUM
  13. GLUCAGON. [Concomitant]
     Active Substance: GLUCAGON
  14. LINEZOLID. [Concomitant]
     Active Substance: LINEZOLID

REACTIONS (1)
  - Infective pulmonary exacerbation of cystic fibrosis [Unknown]
